FAERS Safety Report 4409433-0 (Version None)
Quarter: 2004Q3

REPORT INFORMATION
  Report Type: 
  Country: None (occurrence: None)
  Receive Date: 20040727
  Receipt Date: 20040727
  Transmission Date: 20050211
  Serious: Yes (Other)
  Sender: FDA-Public Use
  Company Number: None

PATIENT
  Age: 57 Year
  Sex: Female
  Weight: 56.6996 kg

DRUGS (13)
  1. ENBREL [Suspect]
     Indication: RHEUMATOID ARTHRITIS
     Dosage: SQ
     Route: 058
     Dates: start: 20010101, end: 20040719
  2. ARAVA [Concomitant]
  3. PREDNISONE [Concomitant]
  4. RELAFEN [Concomitant]
  5. DIOVAN [Concomitant]
  6. PROTONIX [Concomitant]
  7. FOSAMAX [Concomitant]
  8. VIVELLE DVT [Concomitant]
  9. AYGESTIN [Concomitant]
  10. ALLEGRA [Concomitant]
  11. NASALCORT [Concomitant]
  12. ADVAIR DISKUS 100/50 [Concomitant]
  13. ALBUTEROL [Concomitant]

REACTIONS (3)
  - ANOSMIA [None]
  - DYSGEUSIA [None]
  - PAROSMIA [None]
